FAERS Safety Report 5736341-5 (Version None)
Quarter: 2008Q2

REPORT INFORMATION
  Report Type: 
  Country: None (occurrence: None)
  Receive Date: 20080513
  Receipt Date: 20080506
  Transmission Date: 20081010
  Serious: Yes (Life-Threatening, Hospitalization, Other)
  Sender: FDA-Public Use
  Company Number: DE-ELI_LILLY_AND_COMPANY-DE200803003563

PATIENT
  Sex: Female
  Weight: 100.6 kg

DRUGS (12)
  1. BYETTA [Suspect]
     Indication: TYPE 2 DIABETES MELLITUS
     Dosage: 5 UG, 2/D
     Route: 058
     Dates: start: 20080304, end: 20080305
  2. BYETTA [Suspect]
     Dosage: 5 UG, DAILY (1/D)
     Route: 058
     Dates: start: 20080306, end: 20080308
  3. SIMVASTATIN [Concomitant]
     Dosage: 20 MG, DAILY (1/D)
  4. GLIMEPIRIDE [Concomitant]
     Dosage: 6 MG, DAILY (1/D)
     Dates: end: 20080305
  5. GLIMEPIRIDE [Concomitant]
     Dosage: 4 MG, EACH MORNING
     Dates: start: 20080306
  6. ASPIRIN [Concomitant]
     Dosage: 100 MG, UNK
  7. METFORMIN HCL [Concomitant]
     Dosage: 850 MG, 2/D
     Dates: start: 20080226, end: 20080305
  8. METFORMIN HCL [Concomitant]
     Dosage: 425 MG, DAILY (1/D)
     Dates: start: 20080306
  9. RAMIPRIL [Concomitant]
     Dosage: 10 MG, DAILY (1/D)
     Dates: end: 20080301
  10. RAMIPRIL [Concomitant]
     Dosage: 5 MG, EACH MORNING
     Dates: start: 20080301
  11. BISOPROLOL FUMARATE [Concomitant]
     Dosage: 5 MG, 2/D
  12. MARCUMAR [Concomitant]
     Dates: start: 20080101

REACTIONS (11)
  - ARRHYTHMIA [None]
  - ATRIAL FIBRILLATION [None]
  - DIZZINESS [None]
  - FEELING ABNORMAL [None]
  - FEELING OF BODY TEMPERATURE CHANGE [None]
  - HYPERTENSION [None]
  - LOSS OF CONSCIOUSNESS [None]
  - NAUSEA [None]
  - TACHYCARDIA [None]
  - TREMOR [None]
  - VOMITING [None]
